FAERS Safety Report 6767846-6 (Version None)
Quarter: 2010Q2

REPORT INFORMATION
  Report Type: 
  Country: None (occurrence: None)
  Receive Date: 20100610
  Receipt Date: 20100527
  Transmission Date: 20101027
  Serious: Yes (Hospitalization, Other)
  Sender: FDA-Public Use
  Company Number: 012650

PATIENT
  Sex: Male

DRUGS (6)
  1. KEPPRA [Suspect]
     Dosage: (1 G 2X/YEAR)
  2. KEPPRA [Suspect]
     Dosage: (1 G BID ORAL)
     Route: 048
  3. ISOSORBIDE MONONITRATE [Concomitant]
  4. CARBAMAZEPINE [Concomitant]
  5. LOPERAMIDE [Concomitant]
  6. CARDIAC THERAPY [Concomitant]

REACTIONS (2)
  - GASTROINTESTINAL CARCINOMA [None]
  - PRODUCT TASTE ABNORMAL [None]
